FAERS Safety Report 4965497-7 (Version None)
Quarter: 2006Q2

REPORT INFORMATION
  Report Type: 
  Country: None (occurrence: None)
  Receive Date: 20060406
  Receipt Date: 20060314
  Transmission Date: 20061013
  Serious: Yes (Hospitalization)
  Sender: FDA-Public Use
  Company Number: FR-MERCK-0603FRA00048

PATIENT
  Age: 58 Year
  Sex: Female

DRUGS (6)
  1. INDOCIN [Suspect]
     Indication: OSTEOARTHRITIS
     Route: 048
     Dates: start: 20041201, end: 20051203
  2. INDOCIN [Suspect]
     Route: 048
     Dates: start: 20050801, end: 20050901
  3. INDOCIN [Suspect]
     Route: 048
     Dates: start: 20051123, end: 20051203
  4. GLICLAZIDE [Concomitant]
     Indication: DIABETES MELLITUS
     Route: 048
     Dates: start: 20021201
  5. FENOFIBRATE [Concomitant]
     Indication: HYPERCHOLESTEROLAEMIA
     Route: 048
     Dates: start: 20030501
  6. METFORMIN HYDROCHLORIDE [Concomitant]
     Indication: DIABETES MELLITUS
     Route: 048
     Dates: start: 20030501

REACTIONS (3)
  - OEDEMA PERIPHERAL [None]
  - PSORIASIS [None]
  - TOXIC SKIN ERUPTION [None]
